FAERS Safety Report 24277113 (Version 1)
Quarter: 2024Q3

REPORT INFORMATION
  Report Type: Spontaneous
  Country: US (occurrence: US)
  Receive Date: 20240903
  Receipt Date: 20240903
  Transmission Date: 20241017
  Serious: Yes (Other)
  Sender: BRISTOL MYERS SQUIBB
  Company Number: US-BRISTOL-MYERS SQUIBB COMPANY-2024-137658

PATIENT
  Age: 57 Year
  Sex: Female
  Weight: 69.4 kg

DRUGS (1)
  1. ONUREG [Suspect]
     Active Substance: AZACITIDINE
     Indication: Acute myeloid leukaemia
     Dosage: FREQUENCY: 2WKSON/1WKOFF
     Route: 048

REACTIONS (2)
  - Breast disorder [Unknown]
  - Off label use [Unknown]
